FAERS Safety Report 16105064 (Version 1)
Quarter: 2019Q2

REPORT INFORMATION
  Report Type: Spontaneous
  Country: US (occurrence: US)
  Receive Date: 20190321
  Receipt Date: 20190321
  Transmission Date: 20190711
  Serious: Yes (Other)
  Sender: FDA-Public Use
  Company Number: None

PATIENT
  Age: 22 Year
  Sex: Male
  Weight: 65 kg

DRUGS (3)
  1. SULFASALAZINE. [Concomitant]
     Active Substance: SULFASALAZINE
  2. INDOMETHACIN. [Concomitant]
     Active Substance: INDOMETHACIN
  3. CERTOLIZUMAB PEGOL, 400 MG [Suspect]
     Active Substance: CERTOLIZUMAB PEGOL
     Indication: ANKYLOSING SPONDYLITIS
     Route: 058
     Dates: start: 20180118, end: 20190220

REACTIONS (3)
  - Parotitis [None]
  - Orchitis [None]
  - Pyrexia [None]
